FAERS Safety Report 20006876 (Version 1)
Quarter: 2021Q4

REPORT INFORMATION
  Report Type: Spontaneous
  Country: JP (occurrence: JP)
  Receive Date: 20211028
  Receipt Date: 20211028
  Transmission Date: 20220304
  Serious: Yes (Hospitalization, Other)
  Sender: FDA-Public Use
  Company Number: JP-LUPIN PHARMACEUTICALS INC.-2021-20888

PATIENT
  Age: 5 Decade
  Sex: Female

DRUGS (17)
  1. METHYLPREDNISOLONE [Suspect]
     Active Substance: METHYLPREDNISOLONE
     Indication: Systemic lupus erythematosus
     Dosage: 250 MILLIGRAM
     Route: 042
  2. METHYLPREDNISOLONE [Suspect]
     Active Substance: METHYLPREDNISOLONE
     Indication: Immunosuppressant drug therapy
     Dosage: 500 MILLIGRAM
     Route: 042
  3. PREDNISOLONE [Suspect]
     Active Substance: PREDNISOLONE
     Indication: Immunosuppressant drug therapy
     Dosage: 30 MILLIGRAM, QD
     Route: 065
  4. PREDNISOLONE [Suspect]
     Active Substance: PREDNISOLONE
     Indication: Systemic lupus erythematosus
     Dosage: 20 MILLIGRAM, QD (AT ADMISSION)
     Route: 065
  5. PREDNISOLONE [Suspect]
     Active Substance: PREDNISOLONE
     Dosage: UNK (DOSE INCREASED DURING THE FIRST RECURRENCE)
     Route: 065
  6. PREDNISOLONE [Suspect]
     Active Substance: PREDNISOLONE
     Dosage: 70 MG
     Route: 048
  7. PREDNISOLONE [Suspect]
     Active Substance: PREDNISOLONE
     Dosage: 8 MILLIGRAM, QD
     Route: 065
  8. MYCOPHENOLATE MOFETIL [Suspect]
     Active Substance: MYCOPHENOLATE MOFETIL
     Indication: Immunosuppressant drug therapy
     Dosage: 1000 MILLIGRAM, QD
     Route: 065
  9. MYCOPHENOLATE MOFETIL [Suspect]
     Active Substance: MYCOPHENOLATE MOFETIL
     Indication: Systemic lupus erythematosus
     Dosage: 2000 MILLIGRAM, QD
     Route: 065
  10. AZATHIOPRINE [Suspect]
     Active Substance: AZATHIOPRINE
     Indication: Immunosuppressant drug therapy
     Dosage: UNK
     Route: 065
  11. AZATHIOPRINE [Suspect]
     Active Substance: AZATHIOPRINE
     Indication: Systemic lupus erythematosus
  12. TACROLIMUS [Suspect]
     Active Substance: TACROLIMUS
     Indication: Immunosuppressant drug therapy
     Dosage: UNK
     Route: 065
  13. TACROLIMUS [Suspect]
     Active Substance: TACROLIMUS
     Indication: Systemic lupus erythematosus
  14. CYCLOPHOSPHAMIDE [Suspect]
     Active Substance: CYCLOPHOSPHAMIDE
     Indication: Immunosuppressant drug therapy
     Dosage: 50 MILLIGRAM, QD
     Route: 048
  15. CYCLOPHOSPHAMIDE [Suspect]
     Active Substance: CYCLOPHOSPHAMIDE
     Indication: Systemic lupus erythematosus
     Dosage: 500 MG
     Route: 042
  16. HYDROXYCHLOROQUINE [Concomitant]
     Active Substance: HYDROXYCHLOROQUINE
     Indication: Immunosuppressant drug therapy
     Dosage: 200 MILLIGRAM, QD
     Route: 065
  17. HYDROXYCHLOROQUINE [Concomitant]
     Active Substance: HYDROXYCHLOROQUINE
     Indication: Systemic lupus erythematosus

REACTIONS (2)
  - Central nervous system lymphoma [Recovered/Resolved]
  - Epstein-Barr virus infection [Unknown]
